FAERS Safety Report 8329379-5 (Version None)
Quarter: 2012Q2

REPORT INFORMATION
  Report Type: 
  Country: None (occurrence: None)
  Receive Date: 20120502
  Receipt Date: 20120423
  Transmission Date: 20120825
  Serious: Yes (Hospitalization)
  Sender: FDA-Public Use
  Company Number: PHHO2012JP002544

PATIENT
  Sex: Male

DRUGS (20)
  1. WARFARIN SODIUM [Suspect]
     Dosage: 3.5 MG, UNK
     Route: 048
     Dates: start: 20110827, end: 20110905
  2. ALISKIREN [Suspect]
     Indication: CARDIAC FAILURE
     Dosage: UNK
     Route: 048
     Dates: start: 20100218, end: 20100303
  3. ALISKIREN [Suspect]
     Dosage: UNK
     Route: 048
     Dates: start: 20100304, end: 20120202
  4. WARFARIN SODIUM [Suspect]
     Dosage: 3.5 MG, UNK
     Route: 048
     Dates: start: 20110810, end: 20110821
  5. SIGMART [Suspect]
     Indication: PROPHYLAXIS
     Dosage: 15 MG, UNK
     Route: 048
     Dates: start: 20080722
  6. WARFARIN SODIUM [Suspect]
     Dosage: 3.25 MG, UNK
     Route: 048
     Dates: start: 20110916
  7. ASPIRIN [Suspect]
     Dosage: 200 MG, UNK
     Route: 048
     Dates: start: 20110810, end: 20110818
  8. LIPITOR [Suspect]
     Dosage: 10 MG, UNK
     Route: 048
     Dates: start: 20080722
  9. LASIX [Suspect]
     Indication: CARDIAC FAILURE CHRONIC
     Dosage: 40 MG, UNK
     Route: 048
     Dates: start: 20080722
  10. ENALAPRIL MALEATE [Suspect]
     Indication: CARDIAC FAILURE
     Dosage: UNK
     Route: 048
     Dates: start: 20100107, end: 20100303
  11. ENALAPRIL MALEATE [Suspect]
     Dosage: UNK
     Route: 048
     Dates: start: 20100304, end: 20120202
  12. ASPIRIN [Suspect]
     Indication: PROPHYLAXIS
     Dosage: 200 MG, UNK
     Route: 048
     Dates: start: 20080722
  13. WARFARIN SODIUM [Suspect]
     Dosage: 3.5 MG, UNK
     Route: 048
     Dates: start: 20110428, end: 20110803
  14. SLOW-K [Suspect]
     Indication: HYPOKALAEMIA
     Dosage: 600 MG, UNK
     Route: 048
     Dates: start: 20100916
  15. ASPIRIN [Suspect]
     Dosage: 100 MG, UNK
     Route: 048
     Dates: start: 20111021
  16. ALLOPURINOL [Suspect]
     Dosage: 200 MG, UNK
     Route: 048
     Dates: start: 20080918
  17. PULMICORT [Suspect]
     Dosage: UNK
     Dates: start: 20110915
  18. ASPIRIN [Suspect]
     Dosage: 200 MG, UNK
     Route: 048
     Dates: start: 20110728
  19. RABEPRAZOLE SODIUM [Suspect]
     Indication: PROPHYLAXIS
     Dosage: 10 MG, UNK
     Route: 048
     Dates: start: 20080722
  20. CARVEDILOL [Suspect]
     Indication: CARDIAC FAILURE CHRONIC
     Dosage: 10 MG, UNK
     Route: 048
     Dates: start: 20081211

REACTIONS (2)
  - CEREBRAL INFARCTION [None]
  - ASTHMA [None]
